FAERS Safety Report 18966065 (Version 1)
Quarter: 2021Q1

REPORT INFORMATION
  Report Type: Spontaneous
  Country: IN (occurrence: IN)
  Receive Date: 20210303
  Receipt Date: 20210303
  Transmission Date: 20210420
  Serious: Yes (Hospitalization, Other)
  Sender: FDA-Public Use
  Company Number: IN-GLAXOSMITHKLINE-IN2021GSK055650

PATIENT
  Age: 81 Year
  Sex: Male

DRUGS (12)
  1. ROPINIROLE. [Suspect]
     Active Substance: ROPINIROLE
     Indication: MUSCLE RIGIDITY
  2. RASAGILINE. [Suspect]
     Active Substance: RASAGILINE
     Indication: TREMOR
  3. ROPINIROLE. [Suspect]
     Active Substance: ROPINIROLE
     Indication: PARKINSON^S DISEASE
     Dosage: 0.5 MG, QD (1 TAB BD)
  4. CARBIDOPA AND LEVODOPA [Suspect]
     Active Substance: CARBIDOPA\LEVODOPA
     Indication: MUSCLE RIGIDITY
  5. CARBIDOPA AND LEVODOPA [Suspect]
     Active Substance: CARBIDOPA\LEVODOPA
     Indication: PARKINSON^S DISEASE
     Dosage: UNK (125 MG 1/2 TAB QID)
  6. RASAGILINE. [Suspect]
     Active Substance: RASAGILINE
     Indication: PARKINSON^S DISEASE
     Dosage: 1 MG, QD (OD HS)
  7. RASAGILINE. [Suspect]
     Active Substance: RASAGILINE
     Indication: BRADYKINESIA
  8. ROPINIROLE. [Suspect]
     Active Substance: ROPINIROLE
     Indication: TREMOR
  9. CARBIDOPA AND LEVODOPA [Suspect]
     Active Substance: CARBIDOPA\LEVODOPA
     Indication: BRADYKINESIA
  10. RASAGILINE. [Suspect]
     Active Substance: RASAGILINE
     Indication: MUSCLE RIGIDITY
  11. CARBIDOPA AND LEVODOPA [Suspect]
     Active Substance: CARBIDOPA\LEVODOPA
     Indication: TREMOR
  12. ROPINIROLE. [Suspect]
     Active Substance: ROPINIROLE
     Indication: BRADYKINESIA

REACTIONS (15)
  - Hypotonia [Recovered/Resolved]
  - Treatment noncompliance [Unknown]
  - Dystonia [Recovered/Resolved]
  - Dyskinesia [Recovered/Resolved]
  - Resting tremor [Recovered/Resolved]
  - Hallucination, visual [Recovered/Resolved]
  - Eye movement disorder [Recovered/Resolved]
  - Muscle spasms [Recovered/Resolved]
  - Chorea [Recovered/Resolved]
  - Disorientation [Recovered/Resolved]
  - Balance disorder [Recovered/Resolved]
  - Condition aggravated [Recovered/Resolved]
  - Unresponsive to stimuli [Recovered/Resolved]
  - Movement disorder [Recovered/Resolved]
  - Protrusion tongue [Recovered/Resolved]
